FAERS Safety Report 7151534-0 (Version None)
Quarter: 2010Q4

REPORT INFORMATION
  Report Type: 
  Country: None (occurrence: None)
  Receive Date: 20101210
  Receipt Date: 20101129
  Transmission Date: 20110411
  Serious: Yes (Hospitalization)
  Sender: FDA-Public Use
  Company Number: US-MYLANLABS-2010S1018497

PATIENT
  Age: 30 Year
  Sex: Female
  Weight: 62.6 kg

DRUGS (13)
  1. METOPROLOL TARTRATE [Suspect]
     Indication: MIGRAINE PROPHYLAXIS
     Route: 048
     Dates: start: 20091215
  2. AMITRIPTYLINE [Concomitant]
     Indication: MIGRAINE
     Route: 048
  3. PROTONIX [Concomitant]
     Indication: ULCER
     Route: 048
  4. PLAVIX [Concomitant]
     Indication: BLOOD CHOLESTEROL
     Route: 048
  5. PRAVASTATIN [Concomitant]
     Indication: BLOOD CHOLESTEROL
     Route: 048
  6. NASONEX [Concomitant]
     Route: 045
  7. PROVENTIL [Concomitant]
     Dosage: MDI
     Route: 055
  8. VITAMIN D [Concomitant]
  9. CETIRIZINE HYDROCHLORIDE W/PSEUDOEPHEDRI.HCL [Concomitant]
  10. MULTI-VITAMINS [Concomitant]
  11. FISH OIL [Concomitant]
  12. CHLOROQUIN PHOSPHATE [Concomitant]
  13. VANDAZOLE [Concomitant]

REACTIONS (5)
  - DYSARTHRIA [None]
  - HEMIPARESIS [None]
  - HYPOTENSION [None]
  - LOSS OF CONSCIOUSNESS [None]
  - MIGRAINE [None]
